FAERS Safety Report 7894372-3 (Version None)
Quarter: 2011Q4

REPORT INFORMATION
  Report Type: 
  Country: None (occurrence: None)
  Receive Date: 20111104
  Receipt Date: 20111024
  Transmission Date: 20120403
  Serious: Yes (Other)
  Sender: FDA-Public Use
  Company Number: FR-ROCHE-1007746

PATIENT
  Age: 65 Year
  Sex: Male

DRUGS (3)
  1. TOCILIZUMAB [Suspect]
     Dosage: THIRD INFUSION
  2. TOCILIZUMAB [Suspect]
     Dosage: RE-INTRODUCTION
  3. TOCILIZUMAB [Suspect]
     Indication: RHEUMATOID ARTHRITIS
     Dosage: 11 MONTHS

REACTIONS (1)
  - ULCERATIVE KERATITIS [None]
